FAERS Safety Report 25417773 (Version 2)
Quarter: 2025Q3

REPORT INFORMATION
  Report Type: Spontaneous
  Country: JP (occurrence: JP)
  Receive Date: 20250610
  Receipt Date: 20250714
  Transmission Date: 20251021
  Serious: Yes (Death, Other)
  Sender: VERICEL
  Company Number: JP-VERICEL-JP-VCEL-25-000155

PATIENT
  Age: 29 Year
  Sex: Male
  Weight: 75 kg

DRUGS (8)
  1. BROMELAINS [Suspect]
     Active Substance: BROMELAINS
     Indication: Burns second degree
     Route: 061
     Dates: start: 20250415, end: 20250415
  2. BROMELAINS [Suspect]
     Active Substance: BROMELAINS
     Indication: Burns third degree
  3. CALCIUM CHLORIDE\POTASSIUM CHLORIDE\SODIUM CHLORIDE\SODIUM LACTATE [Concomitant]
     Active Substance: CALCIUM CHLORIDE\POTASSIUM CHLORIDE\SODIUM CHLORIDE\SODIUM LACTATE
     Indication: Cardiovascular evaluation
     Route: 042
     Dates: end: 20250423
  4. PIPERACILLIN SODIUM [Concomitant]
     Active Substance: PIPERACILLIN SODIUM
     Indication: Infection prophylaxis
     Route: 042
     Dates: end: 20250423
  5. REMIFENTANIL [Concomitant]
     Active Substance: REMIFENTANIL
     Indication: Pain management
     Route: 042
     Dates: end: 20250423
  6. PITRESSIN [Concomitant]
     Active Substance: VASOPRESSIN
     Indication: Cardiovascular evaluation
     Route: 042
     Dates: end: 20250423
  7. KETALAR [Concomitant]
     Active Substance: KETAMINE HYDROCHLORIDE
     Indication: Pain management
     Route: 042
     Dates: end: 20250423
  8. OMEPRAZOLE [Concomitant]
     Active Substance: OMEPRAZOLE
     Indication: Prophylaxis
     Dosage: UNK, QD
     Route: 042
     Dates: end: 20250423

REACTIONS (1)
  - Multiple organ dysfunction syndrome [Fatal]

NARRATIVE: CASE EVENT DATE: 20250423
